FAERS Safety Report 16838078 (Version 2)
Quarter: 2020Q3

REPORT INFORMATION
  Report Type: Other
  Country: DE (occurrence: DE)
  Receive Date: 20190923
  Receipt Date: 20200921
  Transmission Date: 20201102
  Serious: Yes (Other)
  Sender: FDA-Public Use
  Company Number: DE-LUPIN PHARMACEUTICALS INC.-2019-05994

PATIENT
  Age: 30 Year
  Sex: Female
  Weight: 88 kg

DRUGS (2)
  1. FOLIO FORTE [Concomitant]
     Active Substance: FOLIC ACID\VITAMINS
     Indication: PROPHYLAXIS OF NEURAL TUBE DEFECT
     Dosage: 0.8 MILLIGRAM, QD, (BIS 0.4 MG/D) (0. ? 40.2. GESTATIONAL WEEK)
     Route: 048
     Dates: start: 20180526, end: 20190304
  2. QUETIAPINE FUMARATE EXTENDED?RELEASE [Suspect]
     Active Substance: QUETIAPINE FUMARATE
     Indication: BIPOLAR I DISORDER
     Dosage: 600 MILLIGRAM, QD (BIS 500 MG/D) (0. ? 40.2. GESTATIONAL WEEK)
     Route: 048
     Dates: start: 20180526, end: 20190304

REACTIONS (2)
  - Gestational diabetes [Recovered/Resolved]
  - Exposure during pregnancy [Unknown]
